FAERS Safety Report 5615631-0 (Version None)
Quarter: 2008Q1

REPORT INFORMATION
  Report Type: 
  Country: None (occurrence: None)
  Receive Date: 20080205
  Receipt Date: 20080205
  Transmission Date: 20080703
  Serious: Yes (Hospitalization, Other)
  Sender: FDA-Public Use
  Company Number: None

PATIENT
  Age: 31 Year
  Sex: Female
  Weight: 75.7507 kg

DRUGS (11)
  1. OMALIZUMAB GENENTECH [Suspect]
     Indication: ASTHMA
     Dosage: 375 MG Q2WEEKS SQ
     Route: 058
     Dates: start: 20080116, end: 20080130
  2. FLONASE [Concomitant]
  3. OPTIVAR [Concomitant]
  4. FEXOFENADINE [Concomitant]
  5. ASTELIN [Concomitant]
  6. YAZ [Concomitant]
  7. ADVAIR DISKUS 100/50 [Concomitant]
  8. M.V.I. [Concomitant]
  9. SINGULAIR [Concomitant]
  10. ASCORBIC ACID [Concomitant]
  11. ALBUTEROL [Concomitant]

REACTIONS (6)
  - BLOOD PRESSURE INCREASED [None]
  - ECZEMA [None]
  - PAIN [None]
  - PAIN OF SKIN [None]
  - RASH ERYTHEMATOUS [None]
  - URTICARIA [None]
